FAERS Safety Report 5990739-9 (Version None)
Quarter: 2008Q4

REPORT INFORMATION
  Report Type: 
  Country: None (occurrence: None)
  Receive Date: 20081211
  Receipt Date: 20081202
  Transmission Date: 20090506
  Serious: Yes (Other)
  Sender: FDA-Public Use
  Company Number: TR-WATSON-2008-07089

PATIENT
  Age: 90 Year
  Sex: Male

DRUGS (1)
  1. CEFUROXIME SODIUM (WATSON LABORATORIES) [Suspect]
     Indication: URINARY TRACT INFECTION
     Dosage: 750 MG, SINGLE
     Route: 030

REACTIONS (2)
  - ANGINA PECTORIS [None]
  - DRUG HYPERSENSITIVITY [None]
